FAERS Safety Report 8551527-2 (Version None)
Quarter: 2012Q3

REPORT INFORMATION
  Report Type: 
  Country: None (occurrence: None)
  Receive Date: 20120730
  Receipt Date: 20120406
  Transmission Date: 20120928
  Serious: No
  Sender: FDA-Public Use
  Company Number: US-ALLERGAN-1200827US

PATIENT
  Age: 86 Year
  Sex: Male

DRUGS (3)
  1. LUMIGAN [Suspect]
     Indication: GLAUCOMA
     Dosage: 2 GTT, QHS
     Route: 047
     Dates: start: 20111201
  2. LUMIGAN [Suspect]
     Dosage: 2 GTT, QHS
     Route: 047
     Dates: start: 20110901
  3. COMBIGAN [Concomitant]
     Indication: GLAUCOMA
     Dosage: 2 GTT, BID
     Route: 047
     Dates: start: 20100101

REACTIONS (4)
  - EYE IRRITATION [None]
  - VISION BLURRED [None]
  - SINUSITIS [None]
  - DIPLOPIA [None]
